FAERS Safety Report 8808979 (Version 1)
Quarter: 2012Q4

REPORT INFORMATION
  Report Type: Spontaneous
  Country: GB (occurrence: None)
  Receive Date: 20120920
  Receipt Date: 20120920
  Transmission Date: 20130627
  Serious: Yes (Other)
  Sender: FDA-Public Use
  Company Number: GB-DEXPHARM-20121246

PATIENT
  Age: 83 Year
  Sex: Female

DRUGS (16)
  1. OMEPRAZOLE [Suspect]
     Dosage: dose : 20 Mg milligram (s) sep. dosages / interval : 1 in 1 Day
     Route: 048
     Dates: end: 20120821
  2. AMOXICILLIN\CLAVULANATE POTASSIUM [Suspect]
     Indication: URINARY TRACT INFECTION
     Dosage: 1000mg/ 200mg powder for solution for injection (changed to oral) dose: 1.2 G gram(s)sep. dosages / interval: 3 in 1 Day cumulative dose: 7.19999999 G gram(s)
     Route: 040
     Dates: start: 20120818, end: 20120819
  3. AMOXICILLIN\CLAVULANATE POTASSIUM [Suspect]
     Indication: URINARY TRACT INFECTION
     Dosage: 1.2 G gram(s) sep. dosage / interval 3 in 1 Day cumulative dose 7.19999999 G gram (s)
  4. AMOXICILLIN\CLAVULANATE POTASSIUM [Suspect]
     Indication: URINARY TRACT INFECTION
     Dosage: 1 Day dosage text: 500mg/125 mg Oral  dose: 625 Mg milligram(s) sep. dosages / interval:3 in 1 Day cumulative dose: 1875.0 Mg milligram(s)
     Route: 048
     Dates: start: 20120820, end: 20120821
  5. AMOXICILLIN\CLAVULANATE POTASSIUM [Suspect]
     Indication: URINARY TRACT INFECTION
     Dosage: 625 Mg milligram(s) sep. dosages / interval 3 in 1 day cumulative dose: 1875.0 Mg  milligram (s)
  6. EPILIM [Suspect]
     Indication: TONIC-CLONIC SEIZURES
     Dosage: 2 Day dose : 200 Mg milligram(s) sep. dosages / interval: 2 in 1 Day cumulative dose: 400.0 Mg milligram(s)
     Route: 048
     Dates: start: 20120819, end: 20120821
  7. PHENYTOIN [Suspect]
     Indication: TONIC-CLONIC SEIZURES
     Dosage: 1 Day dosage text: 750mg one off dose. 250mg / 5ml dose: 750 Mg(s) sep. dosages /  interval 1 in 1 Solution for injection
     Route: 042
     Dates: start: 20120818, end: 20120818
  8. GENTICIN [Suspect]
     Indication: URINARY TRACT INFECTION
     Dosage: 1 Day dosage text: 240mg one-off dose. 80mg/2ml. intravenous drip  dose: 250 mg milligram(s) sep. dosages / interval: 1 in 1
     Route: 042
     Dates: start: 20120818, end: 20120818
  9. BULTRANS [Concomitant]
  10. CALCEOS [Concomitant]
  11. EBIXA [Concomitant]
  12. MOVICOL [Concomitant]
  13. PARACETAMOL [Concomitant]
  14. PROTELOS [Concomitant]
  15. SENNA [Concomitant]
  16. TRIMETHOPRIM [Concomitant]

REACTIONS (3)
  - Blood creatine phosphokinase increased [None]
  - Urinary tract infection [None]
  - Grand mal convulsion [None]
